FAERS Safety Report 18765871 (Version 2)
Quarter: 2021Q2

REPORT INFORMATION
  Report Type: Spontaneous
  Country: DE (occurrence: DE)
  Receive Date: 20210120
  Receipt Date: 20210401
  Transmission Date: 20210717
  Serious: Yes (Hospitalization)
  Sender: FDA-Public Use
  Company Number: DE-JNJFOC-20210122558

PATIENT
  Age: 23 Year
  Sex: Male
  Weight: 50 kg

DRUGS (2)
  1. BETNESOL [BETAMETHASONE VALERATE] [Suspect]
     Active Substance: BETAMETHASONE VALERATE
     Indication: INFLAMMATORY BOWEL DISEASE
     Route: 065
     Dates: start: 20200914
  2. STELARA [Suspect]
     Active Substance: USTEKINUMAB
     Indication: CROHN^S DISEASE
     Route: 058
     Dates: start: 20200928, end: 20201230

REACTIONS (2)
  - Ileostomy [Recovered/Resolved]
  - Anal abscess [Recovered/Resolved]

NARRATIVE: CASE EVENT DATE: 20210111
